FAERS Safety Report 15901782 (Version 1)
Quarter: 2019Q1

REPORT INFORMATION
  Report Type: Spontaneous
  Country: US (occurrence: US)
  Receive Date: 20190201
  Receipt Date: 20190201
  Transmission Date: 20190417
  Serious: No
  Sender: FDA-Public Use
  Company Number: None

PATIENT
  Age: 45 Year
  Sex: Female
  Weight: 85.5 kg

DRUGS (1)
  1. DULOXETINE. [Suspect]
     Active Substance: DULOXETINE
     Indication: DEPRESSION
     Dosage: ?          QUANTITY:1 CAPSULE(S);?
     Route: 048
     Dates: start: 20190121

REACTIONS (10)
  - Sensation of foreign body [None]
  - Dyspepsia [None]
  - Retching [None]
  - Agitation [None]
  - Dysphagia [None]
  - Tremor [None]
  - Loss of libido [None]
  - Motion sickness [None]
  - Dry mouth [None]
  - Muscle twitching [None]

NARRATIVE: CASE EVENT DATE: 20190121
